FAERS Safety Report 4958310-5 (Version None)
Quarter: 2006Q1

REPORT INFORMATION
  Report Type: 
  Country: None (occurrence: None)
  Receive Date: 20060329
  Receipt Date: 20060329
  Transmission Date: 20060701
  Serious: Yes (Hospitalization)
  Sender: FDA-Public Use
  Company Number: None

PATIENT
  Age: 71 Year
  Sex: Female
  Weight: 61.6 kg

DRUGS (12)
  1. KETEK [Suspect]
     Indication: CHRONIC SINUSITIS
     Dosage: PO
     Route: 048
  2. SINGULAIR [Concomitant]
  3. ALLEGRA [Concomitant]
  4. HYDROCHLOROTHIAZIDE [Concomitant]
  5. ADAVIR [Concomitant]
  6. MULTI-VITAMIN [Concomitant]
  7. LISINOPRIL [Concomitant]
  8. NASACORT [Concomitant]
  9. FOSAMAX [Concomitant]
  10. GLUCOSAMINE [Concomitant]
  11. FLONASE [Concomitant]
  12. NEXIUM [Concomitant]

REACTIONS (11)
  - ABDOMINAL DISCOMFORT [None]
  - ALANINE AMINOTRANSFERASE INCREASED [None]
  - ASPARTATE AMINOTRANSFERASE INCREASED [None]
  - BLOOD ALKALINE PHOSPHATASE INCREASED [None]
  - BLOOD AMYLASE INCREASED [None]
  - BLOOD BILIRUBIN INCREASED [None]
  - BLOOD LACTATE DEHYDROGENASE INCREASED [None]
  - CHILLS [None]
  - HYPERHIDROSIS [None]
  - JAUNDICE [None]
  - LIPASE INCREASED [None]
